FAERS Safety Report 9442164 (Version 1)
Quarter: 2013Q3

REPORT INFORMATION
  Report Type: Report from Study
  Country: DE (occurrence: DE)
  Receive Date: 20130806
  Receipt Date: 20130806
  Transmission Date: 20140515
  Serious: Yes (Other)
  Sender: FDA-Public Use
  Company Number: DE-US-EMD SERONO, INC.-7227490

PATIENT
  Age: 45 Year
  Sex: Female

DRUGS (1)
  1. REBIF [Suspect]
     Indication: MULTIPLE SCLEROSIS
     Route: 058
     Dates: start: 2008

REACTIONS (3)
  - Onychomycosis [Recovered/Resolved]
  - Cataract [Not Recovered/Not Resolved]
  - Pruritus generalised [Not Recovered/Not Resolved]
